FAERS Safety Report 5123253-3 (Version None)
Quarter: 2006Q4

REPORT INFORMATION
  Report Type: 
  Country: None (occurrence: None)
  Receive Date: 20061009
  Receipt Date: 20061004
  Transmission Date: 20070319
  Serious: Yes (Hospitalization)
  Sender: FDA-Public Use
  Company Number: US-GLAXOSMITHKLINE-A0622489A

PATIENT
  Age: 64 Year
  Sex: Male

DRUGS (7)
  1. AVODART [Suspect]
     Dosage: .5MG PER DAY
     Route: 048
     Dates: start: 20060710
  2. MEXILETINE HYDROCHLORIDE [Concomitant]
  3. KLOR-CON [Concomitant]
  4. PREDNISONE [Concomitant]
  5. ALPRAZOLAM [Concomitant]
  6. CORDARONE [Concomitant]
  7. SPIRIVA [Concomitant]

REACTIONS (7)
  - BACK PAIN [None]
  - BREAST DISCOMFORT [None]
  - BREAST PAIN [None]
  - DRUG INEFFECTIVE [None]
  - DYSPNOEA [None]
  - PLEURITIC PAIN [None]
  - URINE FLOW DECREASED [None]
